FAERS Safety Report 9730355 (Version 1)
Quarter: 2013Q4

REPORT INFORMATION
  Report Type: Spontaneous
  Country: US (occurrence: US)
  Receive Date: 20131202
  Receipt Date: 20131202
  Transmission Date: 20140711
  Serious: No
  Sender: FDA-Public Use
  Company Number: US-BAYER-2013-146591

PATIENT
  Age: 67 Year
  Sex: Female
  Weight: 66 kg

DRUGS (6)
  1. ALEVE CAPLET [Suspect]
     Indication: INFLAMMATORY PAIN
     Dosage: 1 DF, QD
     Route: 048
  2. MULTIVITAMIN [Concomitant]
  3. GLUCOSAMINE [Concomitant]
  4. CALCIUM [Concomitant]
  5. BABY ASPIRIN [Concomitant]
  6. PREDNISONE [Concomitant]

REACTIONS (2)
  - Incorrect drug administration duration [None]
  - Incorrect drug administration duration [None]
